FAERS Safety Report 5150416-3 (Version None)
Quarter: 2006Q4

REPORT INFORMATION
  Report Type: 
  Country: None (occurrence: None)
  Receive Date: 20061109
  Receipt Date: 20061109
  Transmission Date: 20070319
  Serious: Yes (Hospitalization)
  Sender: FDA-Public Use
  Company Number: None

PATIENT
  Age: 79 Year
  Sex: Female

DRUGS (9)
  1. MIRAPEX [Suspect]
     Indication: PARKINSON'S DISEASE
     Dosage: 0.125MG TITRATED TO 0.375MG TID PO
     Route: 048
     Dates: start: 20060419, end: 20060501
  2. MIRAPEX [Suspect]
     Indication: TREMOR
     Dosage: 0.125MG TITRATED TO 0.375MG TID PO
     Route: 048
     Dates: start: 20060419, end: 20060501
  3. COMBIVENT [Concomitant]
  4. THEOPHYLLINE [Concomitant]
  5. RANITIDINE [Concomitant]
  6. HYDROCHLOROTHIAZIDE [Concomitant]
  7. TRAMADOL HCL [Concomitant]
  8. ALBUTEROL [Concomitant]
  9. ENALAPRIL MALEATE [Concomitant]

REACTIONS (5)
  - CONFUSIONAL STATE [None]
  - DEMENTIA [None]
  - HALLUCINATION, VISUAL [None]
  - MOVEMENT DISORDER [None]
  - URINARY TRACT INFECTION [None]
